FAERS Safety Report 22634832 (Version 1)
Quarter: 2023Q2

REPORT INFORMATION
  Report Type: Spontaneous
  Country: US (occurrence: US)
  Receive Date: 20230623
  Receipt Date: 20230623
  Transmission Date: 20230722
  Serious: No
  Sender: FDA-Public Use
  Company Number: US-SA-SAC20230620000394

PATIENT
  Sex: Male
  Weight: 54.43 kg

DRUGS (10)
  1. DUPIXENT [Suspect]
     Active Substance: DUPILUMAB
     Indication: Dermatitis atopic
     Dosage: 300 MG, QOW
     Route: 058
  2. VYVANSE [Concomitant]
     Active Substance: LISDEXAMFETAMINE DIMESYLATE
     Dosage: UNK
  3. GUANFACINE [Concomitant]
     Active Substance: GUANFACINE
     Dosage: UNK
  4. FLOVENT [Concomitant]
     Active Substance: FLUTICASONE PROPIONATE
     Dosage: UNK
  5. VITAMIN D2 [Concomitant]
     Active Substance: ERGOCALCIFEROL
     Dosage: UNK
  6. ALBUTEROL SULFATE [Concomitant]
     Active Substance: ALBUTEROL SULFATE
     Dosage: UNK
  7. GABAPENTIN [Concomitant]
     Active Substance: GABAPENTIN
     Dosage: UNK
  8. MELATONIN [Concomitant]
     Active Substance: MELATONIN
     Dosage: UNK
  9. VITAMIN C [Concomitant]
     Active Substance: ASCORBIC ACID
     Dosage: UNK
  10. FERROUS SULFATE [Concomitant]
     Active Substance: FERROUS SULFATE
     Dosage: UNK

REACTIONS (2)
  - Weight decreased [Unknown]
  - Dermatitis atopic [Unknown]
